FAERS Safety Report 7988480-6 (Version None)
Quarter: 2011Q4

REPORT INFORMATION
  Report Type: 
  Country: None (occurrence: None)
  Receive Date: 20111216
  Receipt Date: 20111213
  Transmission Date: 20120403
  Serious: Yes (Disabling)
  Sender: FDA-Public Use
  Company Number: US-MERCK-1112USA01777

PATIENT
  Age: 78 Year
  Sex: Female

DRUGS (4)
  1. ALENDRONATE SODIUM [Suspect]
     Route: 065
     Dates: start: 20080101, end: 20090401
  2. FOSAMAX [Suspect]
     Route: 048
     Dates: start: 20080101, end: 20080501
  3. FOSAMAX [Suspect]
     Route: 048
     Dates: start: 20010101, end: 20080201
  4. FOSAMAX [Suspect]
     Route: 048
     Dates: start: 20090101, end: 20100301

REACTIONS (2)
  - LOW TURNOVER OSTEOPATHY [None]
  - FEMUR FRACTURE [None]
